FAERS Safety Report 9332085 (Version 1)
Quarter: 2013Q2

REPORT INFORMATION
  Report Type: Spontaneous
  Country: US (occurrence: US)
  Receive Date: 20130605
  Receipt Date: 20130605
  Transmission Date: 20140414
  Serious: No
  Sender: FDA-Public Use
  Company Number: US-009507513-1306USA000858

PATIENT
  Sex: Female

DRUGS (2)
  1. SAPHRIS [Suspect]
     Indication: BIPOLAR I DISORDER
     Dosage: 5 MG, BID
     Route: 060
  2. PROZAC [Concomitant]

REACTIONS (3)
  - Hypersensitivity [Recovered/Resolved]
  - Bradycardia [Recovered/Resolved]
  - Dysphagia [Recovered/Resolved]
